FAERS Safety Report 9544232 (Version 2)
Quarter: 2014Q1

REPORT INFORMATION
  Report Type: Spontaneous
  Country: GB (occurrence: GB)
  Receive Date: 20130923
  Receipt Date: 20140114
  Transmission Date: 20141002
  Serious: Yes (Other)
  Sender: FDA-Public Use
  Company Number: PHFR2013GB005352

PATIENT
  Age: 31 Year
  Sex: Female

DRUGS (6)
  1. TEGRETOL RETARD [Suspect]
     Indication: EPILEPSY
     Dosage: UNK
     Route: 048
  2. TEGRETOL RETARD [Interacting]
     Dosage: UNK
  3. IMPLANON [Interacting]
     Indication: CONTRACEPTION
     Dosage: UNK UKN, UNK
     Route: 059
     Dates: start: 200909, end: 20120906
  4. CLOBAZAM [Concomitant]
     Indication: EPILEPSY
     Dosage: UNK UKN, UNK
     Route: 048
  5. LEVETIRACETAM [Concomitant]
     Dosage: UNK UKN, UNK
     Route: 048
  6. LISINOPRIL [Concomitant]
     Indication: HEART DISEASE CONGENITAL
     Dosage: UNK UKN, UNK

REACTIONS (3)
  - Pregnancy with implant contraceptive [Unknown]
  - Drug interaction [Unknown]
  - Maternal exposure during pregnancy [Unknown]
